FAERS Safety Report 5779417-9 (Version None)
Quarter: 2008Q2

REPORT INFORMATION
  Report Type: 
  Country: None (occurrence: None)
  Receive Date: 20080601
  Receipt Date: 20080318
  Transmission Date: 20081010
  Serious: No
  Sender: FDA-Public Use
  Company Number: 2005PV002103

PATIENT
  Age: 57 Year
  Sex: Female
  Weight: 96.6 kg

DRUGS (10)
  1. EXENATIDE(EXENATIDE) PEN,DISPOSABLE [Suspect]
     Indication: TYPE 2 DIABETES MELLITUS
     Dosage: 5 UG, 2/D, SUBCUTANEOUS ; 5 UG, 2/D, SUBCUTANEOUS; 10 UG, 2/D, SUBCUTANEOUS
     Route: 058
     Dates: start: 20051012, end: 20050101
  2. EXENATIDE(EXENATIDE) PEN,DISPOSABLE [Suspect]
     Indication: TYPE 2 DIABETES MELLITUS
     Dosage: 5 UG, 2/D, SUBCUTANEOUS ; 5 UG, 2/D, SUBCUTANEOUS; 10 UG, 2/D, SUBCUTANEOUS
     Route: 058
     Dates: start: 20050913, end: 20050919
  3. EXENATIDE(EXENATIDE) PEN,DISPOSABLE [Suspect]
     Indication: TYPE 2 DIABETES MELLITUS
     Dosage: 5 UG, 2/D, SUBCUTANEOUS ; 5 UG, 2/D, SUBCUTANEOUS; 10 UG, 2/D, SUBCUTANEOUS
     Route: 058
     Dates: start: 20050101, end: 20060101
  4. EXENATIDE(EXENATIDE) PEN,DISPOSABLE [Suspect]
  5. GLIPIZIDE XL (GLIPIZIDE) [Concomitant]
  6. METFORMIN HCL [Concomitant]
  7. AVANDIA [Concomitant]
  8. LANTUS [Concomitant]
  9. DRUG USED IN DIABETES [Concomitant]
  10. ACTOS /USA/ (PIOGLITAZONE HYDROCHLORIDE) [Concomitant]

REACTIONS (6)
  - BLOOD GLUCOSE DECREASED [None]
  - HYPERHIDROSIS [None]
  - NAUSEA [None]
  - SENSATION OF FOREIGN BODY [None]
  - STOMACH DISCOMFORT [None]
  - VOMITING [None]
